FAERS Safety Report 13994656 (Version 1)
Quarter: 2017Q3

REPORT INFORMATION
  Report Type: Spontaneous
  Country: US (occurrence: None)
  Receive Date: 20170920
  Receipt Date: 20170920
  Transmission Date: 20171128
  Serious: No
  Sender: FDA-Public Use
  Company Number: None

PATIENT
  Age: 60 Year
  Sex: Female

DRUGS (1)
  1. ZEPATIER [Suspect]
     Active Substance: ELBASVIR\GRAZOPREVIR
     Dosage: 1 TAB QD ORAL?STILL ON 9/20/2017
     Route: 048
     Dates: start: 20170830

REACTIONS (1)
  - Pruritus [None]

NARRATIVE: CASE EVENT DATE: 20170830
